FAERS Safety Report 13455060 (Version 5)
Quarter: 2017Q3

REPORT INFORMATION
  Report Type: Report from Study
  Country: JP (occurrence: JP)
  Receive Date: 20170419
  Receipt Date: 20170811
  Transmission Date: 20171127
  Serious: Yes (Hospitalization)
  Sender: FDA-Public Use
  Company Number: JP-INCYTE CORPORATION-2017IN002896

PATIENT

DRUGS (12)
  1. LOXOPROFEN [Suspect]
     Active Substance: LOXOPROFEN
     Indication: ENTEROCOLITIS INFECTIOUS
  2. RED BLOOD CELLS-LEUKOCYTES REDUCED [Concomitant]
     Dosage: 2 IU, UNK
     Route: 041
     Dates: start: 20150916, end: 20150916
  3. LOXOPROFEN [Suspect]
     Active Substance: LOXOPROFEN
     Indication: PYREXIA
  4. RED BLOOD CELLS-LEUKOCYTES REDUCED [Concomitant]
     Indication: PRIMARY MYELOFIBROSIS
     Dosage: 2 IU, UNK
     Route: 041
     Dates: start: 20150724, end: 20150724
  5. RED BLOOD CELLS-LEUKOCYTES REDUCED [Concomitant]
     Dosage: 2 IU, UNK
     Dates: start: 20160812, end: 20170309
  6. JAKAVI [Suspect]
     Active Substance: RUXOLITINIB
     Dosage: 5 MG, QOD
     Route: 048
     Dates: start: 20170421, end: 20170511
  7. LOXOPROFEN [Suspect]
     Active Substance: LOXOPROFEN
     Indication: ENTEROCOLITIS INFECTIOUS
     Dosage: 60 MG, QD
     Route: 048
     Dates: start: 20170314, end: 20170406
  8. RED BLOOD CELLS-LEUKOCYTES REDUCED [Concomitant]
     Dosage: 2 IU, UNK
     Route: 041
     Dates: start: 20151209, end: 20151209
  9. JAKAVI [Suspect]
     Active Substance: RUXOLITINIB
     Dosage: 10 MG, BID
     Route: 048
     Dates: start: 20150513, end: 20170413
  10. JAKAVI [Suspect]
     Active Substance: RUXOLITINIB
     Indication: PRIMARY MYELOFIBROSIS
     Dosage: 15 MG, BID
     Route: 048
     Dates: start: 20150408, end: 20150512
  11. JAKAVI [Suspect]
     Active Substance: RUXOLITINIB
     Dosage: 5 MG, BID
     Route: 048
     Dates: start: 20170414, end: 20170416
  12. JAKAVI [Suspect]
     Active Substance: RUXOLITINIB
     Dosage: 5 MG, QD
     Route: 048
     Dates: start: 20170417, end: 20170420

REACTIONS (3)
  - Peritonitis [Not Recovered/Not Resolved]
  - Small intestinal perforation [Not Recovered/Not Resolved]
  - Enterocolitis infectious [Not Recovered/Not Resolved]

NARRATIVE: CASE EVENT DATE: 20170225
